FAERS Safety Report 5256615-4 (Version None)
Quarter: 2007Q1

REPORT INFORMATION
  Report Type: 
  Country: None (occurrence: None)
  Receive Date: 20070306
  Receipt Date: 20070301
  Transmission Date: 20070707
  Serious: Yes (Hospitalization)
  Sender: FDA-Public Use
  Company Number: NZ-SANOFI-SYNTHELABO-F01200602520

PATIENT
  Sex: Female

DRUGS (4)
  1. ONDANSETRON [Concomitant]
     Dates: start: 20061026
  2. BEVACIZUMAB [Suspect]
     Route: 042
     Dates: start: 20061128, end: 20061128
  3. CAPECITABINE [Suspect]
     Dosage: 1300 MG TWICE DAILY FROM 1-7 DAYS OF A 14 DAY CYCLE
     Route: 048
     Dates: start: 20061128, end: 20061128
  4. OXALIPLATIN [Suspect]
     Indication: COLORECTAL CANCER
     Route: 042
     Dates: start: 20061128, end: 20061128

REACTIONS (1)
  - HERPES ZOSTER [None]
